FAERS Safety Report 5569744-2 (Version None)
Quarter: 2007Q4

REPORT INFORMATION
  Report Type: 
  Country: None (occurrence: None)
  Receive Date: 20071214
  Receipt Date: 20071207
  Transmission Date: 20080405
  Serious: Yes (Hospitalization)
  Sender: FDA-Public Use
  Company Number: WAES 0710AUS00204

PATIENT
  Age: 45 Year
  Sex: Male

DRUGS (7)
  1. TAB RALTEGRAVIR [Suspect]
     Indication: HIV INFECTION
     Dosage: 400 MG/BID PO
     Route: 048
     Dates: start: 20070829, end: 20071012
  2. ETRAVIRINE [Suspect]
     Indication: HIV INFECTION
     Dosage: 200 MG/BID PO
     Route: 048
     Dates: start: 20070829, end: 20071012
  3. DEXAMETHASONE TAB [Suspect]
     Indication: CASTLEMAN'S DISEASE
     Dosage: 2 MG/DAILY PO
     Route: 048
  4. DARUNAVIR [Concomitant]
  5. LAMIVUDINE [Concomitant]
  6. RITONAVIR [Concomitant]
  7. TENOFOVIR [Concomitant]

REACTIONS (11)
  - ALANINE AMINOTRANSFERASE INCREASED [None]
  - BLOOD BILIRUBIN INCREASED [None]
  - DRUG TOXICITY [None]
  - GAMMA-GLUTAMYLTRANSFERASE INCREASED [None]
  - HEPATIC ENZYME INCREASED [None]
  - HEPATIC NECROSIS [None]
  - HEPATOSPLENOMEGALY [None]
  - HYPERGLYCAEMIA [None]
  - IMMUNE RECONSTITUTION SYNDROME [None]
  - INCORRECT DOSE ADMINISTERED [None]
  - INFLAMMATION [None]
